FAERS Safety Report 17856471 (Version 1)
Quarter: 2020Q2

REPORT INFORMATION
  Report Type: Spontaneous
  Country: US (occurrence: US)
  Receive Date: 20200603
  Receipt Date: 20200603
  Transmission Date: 20200714
  Serious: No
  Sender: FDA-Public Use
  Company Number: US-PFIZER INC-2018386188

PATIENT
  Age: 46 Year
  Sex: Male

DRUGS (9)
  1. BACLOFEN. [Concomitant]
     Active Substance: BACLOFEN
     Dosage: UNK
  2. NORCO [Concomitant]
     Active Substance: ACETAMINOPHEN\HYDROCODONE BITARTRATE
     Dosage: UNK
  3. MORPHINE [Concomitant]
     Active Substance: MORPHINE
     Dosage: UNK
  4. LYRICA [Concomitant]
     Active Substance: PREGABALIN
     Dosage: UNK
  5. WELLBUTRIN [Concomitant]
     Active Substance: BUPROPION HYDROCHLORIDE
     Dosage: UNK
  6. AMLODIPINE [Concomitant]
     Active Substance: AMLODIPINE BESYLATE
     Dosage: UNK
  7. SOMAVERT [Suspect]
     Active Substance: PEGVISOMANT
     Indication: GIGANTISM
     Dosage: 20 MG, DAILY
     Route: 058
     Dates: start: 20160908
  8. SOMAVERT [Suspect]
     Active Substance: PEGVISOMANT
     Indication: ACROMEGALY
  9. ZOLOFT [Concomitant]
     Active Substance: SERTRALINE HYDROCHLORIDE
     Dosage: UNK

REACTIONS (5)
  - Constipation [Unknown]
  - Arthralgia [Unknown]
  - Product dose omission [Unknown]
  - Memory impairment [Unknown]
  - Wrong technique in product usage process [Unknown]
